FAERS Safety Report 8567776-3 (Version None)
Quarter: 2012Q3

REPORT INFORMATION
  Report Type: 
  Country: None (occurrence: None)
  Receive Date: 20120803
  Receipt Date: 20120725
  Transmission Date: 20120928
  Serious: Yes (Hospitalization)
  Sender: FDA-Public Use
  Company Number: FR-ASTRAZENECA-2012SE53159

PATIENT
  Age: 27 Year
  Sex: Female

DRUGS (1)
  1. NEXIUM [Suspect]
     Indication: OESOPHAGITIS
     Route: 048
     Dates: start: 20070101, end: 20120523

REACTIONS (4)
  - PHARYNGITIS [None]
  - PHOTOSENSITIVITY REACTION [None]
  - MYALGIA [None]
  - LARYNGITIS [None]
